FAERS Safety Report 22608366 (Version 1)
Quarter: 2023Q2

REPORT INFORMATION
  Report Type: Report from Study
  Country: FR (occurrence: FR)
  Receive Date: 20230616
  Receipt Date: 20230616
  Transmission Date: 20230722
  Serious: Yes (Hospitalization)
  Sender: FDA-Public Use
  Company Number: FR-SERVIER-S23004148

PATIENT

DRUGS (11)
  1. PEGASPARGASE [Suspect]
     Active Substance: PEGASPARGASE
     Indication: Acute lymphocytic leukaemia
     Dosage: 613 IU, D8, D36
     Route: 042
     Dates: start: 20200814, end: 20200911
  2. DEXAMETHASONE [Suspect]
     Active Substance: DEXAMETHASONE
     Indication: Acute lymphocytic leukaemia
     Dosage: 3 MG, (D1 TO D5, D29 TO D33)
     Route: 048
     Dates: start: 20200804, end: 20200908
  3. VINCRISTINE [Suspect]
     Active Substance: VINCRISTINE
     Indication: Acute lymphocytic leukaemia
     Dosage: 0.7 MG, (D1, D8, D29 AND D36)
     Route: 042
     Dates: start: 20200804, end: 20200911
  4. MERCAPTOPURINE [Suspect]
     Active Substance: MERCAPTOPURINE
     Indication: Acute lymphocytic leukaemia
     Dosage: 24 MG, (D1 TO D21, D29 TO D49)
     Route: 048
     Dates: start: 20200804
  5. MERCAPTOPURINE [Suspect]
     Active Substance: MERCAPTOPURINE
     Dosage: 30 MG, (D29 TO D42)
     Route: 048
     Dates: start: 20201005
  6. METHOTREXATE [Suspect]
     Active Substance: METHOTREXATE
     Indication: Acute lymphocytic leukaemia
     Dosage: 8 MG, (D2, D30 (SR), D31)
     Route: 037
     Dates: start: 20200805, end: 20200905
  7. METHOTREXATE [Suspect]
     Active Substance: METHOTREXATE
     Dosage: 12.5 MG,  (D8, D15, D22, D36, D43 AND UNSPECIFIED)
     Route: 048
     Dates: start: 20200811
  8. CYCLOPHOSPHAMIDE [Suspect]
     Active Substance: CYCLOPHOSPHAMIDE
     Indication: Acute lymphocytic leukaemia
     Dosage: 480 MG, D29
     Route: 042
     Dates: start: 20201005, end: 20201005
  9. CYTARABINE [Suspect]
     Active Substance: CYTARABINE
     Indication: Acute lymphocytic leukaemia
     Dosage: 20 MG, (D31)
     Route: 037
     Dates: start: 20201007, end: 20201007
  10. CYTARABINE [Suspect]
     Active Substance: CYTARABINE
     Dosage: 36 MG, (D31 TO D34, D38 TO D41)
     Route: 042
     Dates: start: 20201007
  11. HYDROCORTISONE [Suspect]
     Active Substance: HYDROCORTISONE
     Indication: Acute lymphocytic leukaemia
     Dosage: 10 MG, (D31)
     Route: 037
     Dates: start: 20201007, end: 20201007

REACTIONS (2)
  - Sepsis [Recovered/Resolved]
  - General physical health deterioration [Recovered/Resolved]

NARRATIVE: CASE EVENT DATE: 20201009
